FAERS Safety Report 5197792-3 (Version None)
Quarter: 2006Q4

REPORT INFORMATION
  Report Type: 
  Country: None (occurrence: None)
  Receive Date: 20061228
  Receipt Date: 20061214
  Transmission Date: 20070319
  Serious: Yes (Other)
  Sender: FDA-Public Use
  Company Number: 15368

PATIENT
  Age: 2 Year
  Sex: Female

DRUGS (1)
  1. VINCRISTINE [Suspect]

REACTIONS (2)
  - INTESTINAL PERFORATION [None]
  - SEPSIS [None]
